FAERS Safety Report 18339890 (Version 1)
Quarter: 2020Q4

REPORT INFORMATION
  Report Type: Spontaneous
  Country: US (occurrence: US)
  Receive Date: 20201002
  Receipt Date: 20201002
  Transmission Date: 20210113
  Serious: No
  Sender: FDA-Public Use
  Company Number: US-SAREPTA THERAPEUTICS INC.-SRP2020-000646

PATIENT
  Age: 12 Year
  Sex: Male
  Weight: 53.61 kg

DRUGS (26)
  1. HEPARIN LOCK FLUSH [Concomitant]
     Active Substance: HEPARIN SODIUM
     Indication: ANTICOAGULANT THERAPY
     Dosage: 500 UNITS AS DIRECTED
     Route: 042
     Dates: start: 20190814
  2. HYDROCORTISONE ACETATE + IODOQUINOL [Concomitant]
     Indication: ADRENAL DISORDER
     Dosage: AS NEEDED
  3. LISINOPRIL. [Concomitant]
     Active Substance: LISINOPRIL
     Indication: DUCHENNE MUSCULAR DYSTROPHY
  4. NORMAL SALINE [Concomitant]
     Active Substance: SODIUM CHLORIDE
     Indication: FLUID REPLACEMENT
     Dosage: 10 ML, AS DIRECTED
     Route: 042
     Dates: start: 20190814
  5. ACETAMINOPHEN PM [Concomitant]
     Active Substance: ACETAMINOPHEN\DIPHENHYDRAMINE HYDROCHLORIDE
     Indication: ANALGESIC THERAPY
     Dosage: 160 MG/5ML, EVERY 4 HOURS
     Route: 048
  6. SPIRONOLACTONE. [Concomitant]
     Active Substance: SPIRONOLACTONE
     Indication: DUCHENNE MUSCULAR DYSTROPHY
     Dosage: AS DIRECTED
     Route: 048
  7. LIDOCAINE/PRILOCAINE [Concomitant]
     Active Substance: LIDOCAINE\PRILOCAINE
     Indication: PYREXIA
     Dosage: 30 MG, AS DIRECTED
     Route: 061
     Dates: start: 20190826
  8. LEVOTHYROXINE SODIUM. [Concomitant]
     Active Substance: LEVOTHYROXINE SODIUM
     Indication: DUCHENNE MUSCULAR DYSTROPHY
  9. ACETAMINOPHEN PM [Concomitant]
     Active Substance: ACETAMINOPHEN\DIPHENHYDRAMINE HYDROCHLORIDE
     Indication: PYREXIA
  10. UBIQUINOL [Concomitant]
     Active Substance: UBIQUINOL
     Indication: DRUG THERAPY
     Dosage: 200 MG, QD
     Route: 048
  11. ERGOCALCIFEROL. [Concomitant]
     Active Substance: ERGOCALCIFEROL
     Indication: VITAMIN SUPPLEMENTATION
     Dosage: 2000 UNIT, QD
     Route: 048
  12. ERGOCALCIFEROL. [Concomitant]
     Active Substance: ERGOCALCIFEROL
     Indication: DUCHENNE MUSCULAR DYSTROPHY
  13. SODIUM CHLORIDE. [Concomitant]
     Active Substance: SODIUM CHLORIDE
     Indication: FLUID REPLACEMENT
     Dosage: 100 ML, AS DIRECTED
     Route: 042
     Dates: start: 20190814
  14. FISH OIL [Concomitant]
     Active Substance: FISH OIL
     Indication: DUCHENNE MUSCULAR DYSTROPHY
  15. HYDROCORTISONE ACETATE + IODOQUINOL [Concomitant]
     Indication: DUCHENNE MUSCULAR DYSTROPHY
  16. EXONDYS 51 [Suspect]
     Active Substance: ETEPLIRSEN
     Indication: DUCHENNE MUSCULAR DYSTROPHY
     Dosage: 1600 MG, WEEKLY
     Route: 042
     Dates: start: 20190703
  17. FISH OIL [Concomitant]
     Active Substance: FISH OIL
     Indication: DRUG THERAPY
     Dosage: 1000 MG, AS DIRECTED
     Route: 048
  18. LEVOTHYROXINE SODIUM. [Concomitant]
     Active Substance: LEVOTHYROXINE SODIUM
     Indication: THYROID DISORDER
     Dosage: 100 MCG, QD
     Route: 048
  19. EXONDYS 51 [Suspect]
     Active Substance: ETEPLIRSEN
     Dosage: 1600 MG, WEEKLY
     Route: 042
     Dates: start: 20190901
  20. LIDOCAINE/PRILOCAINE [Concomitant]
     Active Substance: LIDOCAINE\PRILOCAINE
     Indication: LOCAL ANAESTHESIA
  21. ALENDRONATE SODIUM. [Concomitant]
     Active Substance: ALENDRONATE SODIUM
     Indication: RESORPTION BONE INCREASED
     Dosage: 35 MG, WEEKLY
     Route: 048
  22. DEFLAZACORT [Concomitant]
     Active Substance: DEFLAZACORT
     Indication: DUCHENNE MUSCULAR DYSTROPHY
     Dosage: 15 MG, QD
     Route: 048
  23. EXONDYS 51 [Suspect]
     Active Substance: ETEPLIRSEN
     Dosage: 1600 MG, WEEKLY
     Route: 042
     Dates: start: 20190826
  24. LISINOPRIL. [Concomitant]
     Active Substance: LISINOPRIL
     Indication: ANGIOTENSIN CONVERTING ENZYME INHIBITOR FOETOPATHY
     Dosage: 2.5 MG, QD
     Route: 048
  25. METFORMIN HCL [Concomitant]
     Active Substance: METFORMIN HYDROCHLORIDE
     Indication: DUCHENNE MUSCULAR DYSTROPHY
     Dosage: 750 MG, QD
     Route: 048
  26. UBIQUINOL [Concomitant]
     Active Substance: UBIQUINOL
     Indication: DUCHENNE MUSCULAR DYSTROPHY

REACTIONS (3)
  - Influenza [Recovered/Resolved]
  - Product dose omission issue [Unknown]
  - Pyrexia [Recovered/Resolved]

NARRATIVE: CASE EVENT DATE: 202001
